FAERS Safety Report 12699077 (Version 4)
Quarter: 2016Q3

REPORT INFORMATION
  Report Type: Report from Study
  Country: CA (occurrence: CA)
  Receive Date: 20160830
  Receipt Date: 20160927
  Transmission Date: 20161109
  Serious: Yes (Hospitalization)
  Sender: FDA-Public Use
  Company Number: CA-HLSUS-2016-CA-000411

PATIENT
  Age: 26 Year
  Sex: Female

DRUGS (1)
  1. CLOZARIL [Suspect]
     Active Substance: CLOZAPINE
     Dosage: 225 MG QHS
     Route: 048
     Dates: start: 20110929, end: 20160825

REACTIONS (4)
  - Blood calcium increased [None]
  - Streptococcal sepsis [Unknown]
  - Autoimmune encephalopathy [Unknown]
  - Pneumonia [Unknown]

NARRATIVE: CASE EVENT DATE: 20160824
